FAERS Safety Report 8954800 (Version 2)
Quarter: 2013Q1

REPORT INFORMATION
  Report Type: Spontaneous
  Country: DE (occurrence: DE)
  Receive Date: 20121207
  Receipt Date: 20130228
  Transmission Date: 20140127
  Serious: Yes (Other)
  Sender: FDA-Public Use
  Company Number: DE-BRISTOL-MYERS SQUIBB COMPANY-17165200

PATIENT
  Age: 71 Year
  Sex: Female

DRUGS (2)
  1. PRAVASTATIN [Suspect]
  2. DICLOFENAC [Suspect]

REACTIONS (3)
  - Hepatic enzyme increased [Unknown]
  - Chromaturia [Unknown]
  - Nausea [Unknown]
